FAERS Safety Report 14779919 (Version 1)
Quarter: 2018Q2

REPORT INFORMATION
  Report Type: Spontaneous
  Country: GR (occurrence: GR)
  Receive Date: 20180419
  Receipt Date: 20180419
  Transmission Date: 20180711
  Serious: Yes (Other)
  Sender: FDA-Public Use
  Company Number: GR-TEVA-2018-GR-884201

PATIENT
  Age: 65 Year
  Sex: Female
  Weight: 75 kg

DRUGS (5)
  1. PRAVASTATIN 40 MG [Suspect]
     Active Substance: PRAVASTATIN
     Route: 065
     Dates: start: 20090321, end: 20090427
  2. ROSUVASTATIN 5 MG [Suspect]
     Active Substance: ROSUVASTATIN
     Route: 065
     Dates: start: 20070312, end: 20080404
  3. ATORVASTATIN 10 MG [Suspect]
     Active Substance: ATORVASTATIN
     Route: 065
     Dates: start: 20100130, end: 20101004
  4. PITAVASTATIN 4 MG [Suspect]
     Active Substance: PITAVASTATIN
     Route: 065
     Dates: start: 20161024, end: 20171124
  5. EZETROL 10 MG [Suspect]
     Active Substance: EZETIMIBE
     Route: 065
     Dates: start: 20100704, end: 20100920

REACTIONS (2)
  - Alanine aminotransferase increased [Unknown]
  - Drug intolerance [Unknown]

NARRATIVE: CASE EVENT DATE: 200804
